FAERS Safety Report 4542278-X (Version None)
Quarter: 2004Q4

REPORT INFORMATION
  Report Type: 
  Country: None (occurrence: None)
  Receive Date: 20041227
  Receipt Date: 20041216
  Transmission Date: 20050328
  Serious: Yes (Other)
  Sender: FDA-Public Use
  Company Number: 2004114221

PATIENT
  Sex: Male
  Weight: 73.9363 kg

DRUGS (7)
  1. LIPITOR [Suspect]
     Indication: HYPERCHOLESTEROLAEMIA
     Dosage: 10 MG, (10 MG, 1 IN 1 D), ORAL
     Route: 048
     Dates: end: 20041201
  2. CLOPIDOGREL BISULFATE [Concomitant]
     Route: 048
  3. ASPIRIN [Concomitant]
  4. LISINOPRIL [Concomitant]
  5. VALPROATE SODIUM [Concomitant]
  6. DOXEPIN (DOXEPIN) [Concomitant]
  7. ALPRAZOLAM [Concomitant]

REACTIONS (6)
  - ANGINA PECTORIS [None]
  - ARTERIOGRAM CORONARY ABNORMAL [None]
  - ASTHENIA [None]
  - IMPAIRED WORK ABILITY [None]
  - MYALGIA [None]
  - PAIN IN EXTREMITY [None]
